FAERS Safety Report 15548548 (Version 6)
Quarter: 2024Q2

REPORT INFORMATION
  Report Type: Report from Study
  Country: PT (occurrence: PT)
  Receive Date: 20181025
  Receipt Date: 20240518
  Transmission Date: 20240715
  Serious: Yes (Life-Threatening, Other)
  Sender: FDA-Public Use
  Company Number: PT-AUROBINDO-AUR-APL-2018-051917

PATIENT
  Age: 29 Year
  Sex: Male

DRUGS (21)
  1. DOXORUBICIN [Suspect]
     Active Substance: DOXORUBICIN
     Indication: Hepatitis C
     Dosage: UNK
     Route: 048
  2. DOXORUBICIN [Suspect]
     Active Substance: DOXORUBICIN
     Indication: Chronic hepatitis C
  3. DOXORUBICIN [Suspect]
     Active Substance: DOXORUBICIN
     Indication: HIV infection
  4. EFAVIRENZ [Suspect]
     Active Substance: EFAVIRENZ
     Indication: Hepatitis C
     Dosage: UNK
     Route: 048
  5. EFAVIRENZ [Suspect]
     Active Substance: EFAVIRENZ
     Indication: Chronic hepatitis C
  6. EFAVIRENZ [Suspect]
     Active Substance: EFAVIRENZ
     Indication: HIV infection
  7. EFAVIRENZ [Suspect]
     Active Substance: EFAVIRENZ
     Indication: HIV infection CDC category C
  8. TENOFOVIR [Suspect]
     Active Substance: TENOFOVIR
     Indication: Hepatitis C
     Dosage: UNK
     Route: 048
  9. TENOFOVIR [Suspect]
     Active Substance: TENOFOVIR
     Indication: Chronic hepatitis C
  10. TENOFOVIR [Suspect]
     Active Substance: TENOFOVIR
     Indication: HIV infection
  11. TENOFOVIR [Suspect]
     Active Substance: TENOFOVIR
     Indication: HIV infection CDC category C
  12. CYAMEMAZINE [Suspect]
     Active Substance: CYAMEMAZINE
     Indication: Hepatitis C
     Dosage: UNK
     Route: 048
  13. CYAMEMAZINE [Suspect]
     Active Substance: CYAMEMAZINE
     Indication: HIV infection
  14. CYAMEMAZINE [Suspect]
     Active Substance: CYAMEMAZINE
     Indication: Chronic hepatitis C
  15. LOPINAVIR\RITONAVIR [Suspect]
     Active Substance: LOPINAVIR\RITONAVIR
     Indication: Hepatitis C
     Dosage: UNK
     Route: 048
  16. LOPINAVIR\RITONAVIR [Suspect]
     Active Substance: LOPINAVIR\RITONAVIR
     Indication: HIV infection
  17. LOPINAVIR\RITONAVIR [Suspect]
     Active Substance: LOPINAVIR\RITONAVIR
     Indication: Chronic hepatitis C
  18. LOPINAVIR\RITONAVIR [Suspect]
     Active Substance: LOPINAVIR\RITONAVIR
     Indication: HIV infection CDC category C
  19. METHADONE [Suspect]
     Active Substance: METHADONE HYDROCHLORIDE
     Indication: Chronic hepatitis C
     Dosage: UNK
     Route: 048
  20. METHADONE [Suspect]
     Active Substance: METHADONE HYDROCHLORIDE
     Indication: Hepatitis C
  21. METHADONE [Suspect]
     Active Substance: METHADONE HYDROCHLORIDE
     Indication: HIV infection

REACTIONS (3)
  - Drug-induced liver injury [Recovered/Resolved]
  - Hepatic fibrosis [Unknown]
  - Transaminases increased [Unknown]
